FAERS Safety Report 9518182 (Version 5)
Quarter: 2014Q3

REPORT INFORMATION
  Report Type: Spontaneous
  Country: US (occurrence: US)
  Receive Date: 20130912
  Receipt Date: 20140818
  Transmission Date: 20150326
  Serious: Yes (Hospitalization, Other)
  Sender: FDA-Public Use
  Company Number: US-009507513-2012SP000421

PATIENT
  Sex: Female
  Weight: 61.69 kg

DRUGS (2)
  1. NUVARING [Suspect]
     Active Substance: ETHINYL ESTRADIOL\ETONOGESTREL
     Indication: CONTRACEPTION
     Dates: start: 20080207, end: 20090404
  2. VYVANSE [Suspect]
     Active Substance: LISDEXAMFETAMINE DIMESYLATE
     Indication: PRODUCT USED FOR UNKNOWN INDICATION
     Dosage: 50 MG, QD
     Route: 048
     Dates: start: 20100817, end: 20101108

REACTIONS (31)
  - Dyspnoea [Recovering/Resolving]
  - Pneumomediastinum [Unknown]
  - Pulmonary embolism [Recovered/Resolved]
  - Hormone level abnormal [Unknown]
  - Hepatic cyst [Unknown]
  - Viral infection [Recovering/Resolving]
  - Nasopharyngitis [Unknown]
  - Rash erythematous [Unknown]
  - Headache [Unknown]
  - Chest pain [Unknown]
  - Haemorrhoids [Unknown]
  - Abdominal pain [Unknown]
  - Haemorrhage [Unknown]
  - Device breakage [Unknown]
  - Chest pain [Unknown]
  - Pain [Unknown]
  - Deep vein thrombosis [Unknown]
  - Hypercoagulation [Unknown]
  - Acne [Unknown]
  - Deep vein thrombosis [Unknown]
  - Cough [Recovering/Resolving]
  - Depression [Unknown]
  - Dyspnoea [Unknown]
  - Thrombosis [Unknown]
  - Ovarian cyst [Unknown]
  - Diverticulum intestinal [Unknown]
  - Poisoning [Unknown]
  - Alopecia [Unknown]
  - Inappropriate schedule of drug administration [Unknown]
  - Gastrointestinal haemorrhage [Unknown]
  - Pain in extremity [Unknown]

NARRATIVE: CASE EVENT DATE: 20080709
